FAERS Safety Report 8181022-4 (Version None)
Quarter: 2012Q1

REPORT INFORMATION
  Report Type: 
  Country: None (occurrence: None)
  Receive Date: 20120302
  Receipt Date: 20120224
  Transmission Date: 20120608
  Serious: Yes (Hospitalization)
  Sender: FDA-Public Use
  Company Number: IT-PFIZER INC-2012050787

PATIENT
  Age: 54 Year
  Sex: Male

DRUGS (1)
  1. CELEBREX [Suspect]
     Indication: ARTHRALGIA
     Dosage: 1 DF, TOTAL
     Route: 048
     Dates: start: 20120221, end: 20120221

REACTIONS (3)
  - PERIORBITAL OEDEMA [None]
  - DRUG ERUPTION [None]
  - RASH PAPULAR [None]
